FAERS Safety Report 6974510-7 (Version None)
Quarter: 2010Q3

REPORT INFORMATION
  Report Type: 
  Country: None (occurrence: None)
  Receive Date: 20100909
  Receipt Date: 20090128
  Transmission Date: 20110219
  Serious: Yes (Life-Threatening)
  Sender: FDA-Public Use
  Company Number: US-WYE-H06439908

PATIENT
  Age: 40 Year
  Sex: Female
  Weight: 66.74 kg

DRUGS (2)
  1. PRISTIQ [Suspect]
     Indication: MAJOR DEPRESSION
     Route: 048
     Dates: start: 20080624, end: 20080725
  2. LISINOPRIL [Concomitant]
     Indication: HYPERTENSION
     Dosage: UNKNOWN
     Dates: start: 20080101

REACTIONS (1)
  - CONVULSION [None]
